FAERS Safety Report 10017489 (Version 1)
Quarter: 2014Q1

REPORT INFORMATION
  Report Type: Spontaneous
  Country: US (occurrence: None)
  Receive Date: 20140313
  Receipt Date: 20140313
  Transmission Date: 20141002
  Serious: Yes (Other)
  Sender: FDA-Public Use
  Company Number: None

PATIENT
  Age: 60 Year
  Sex: Male
  Weight: 97.52 kg

DRUGS (2)
  1. HYDROCODONE/ACETAMINOPHEN [Suspect]
     Dosage: 10/325T 2 TABS 4 X DAY, BY MOUTH
     Dates: start: 2002
  2. FENTANYL [Concomitant]

REACTIONS (5)
  - Product formulation issue [None]
  - Drug effect decreased [None]
  - Abasia [None]
  - Dysstasia [None]
  - Pain [None]
